FAERS Safety Report 5374013-X (Version None)
Quarter: 2007Q2

REPORT INFORMATION
  Report Type: 
  Country: None (occurrence: None)
  Receive Date: 20070628
  Receipt Date: 20070619
  Transmission Date: 20071010
  Serious: Yes (Hospitalization)
  Sender: FDA-Public Use
  Company Number: NL-MERCK-0706NLD00001

PATIENT
  Age: 6 Year
  Sex: Female
  Weight: 22 kg

DRUGS (8)
  1. SINGULAIR [Suspect]
     Indication: ASTHMA
     Route: 048
     Dates: start: 20070425, end: 20070520
  2. VASELINE [Concomitant]
     Indication: ECZEMA
     Route: 061
     Dates: start: 20070101, end: 20070520
  3. CETOMACROGOL 1000 AND CETOSTEARYL ALCOHOL AND DECYL OLEATE AND SORBIC [Concomitant]
     Indication: ECZEMA
     Route: 061
     Dates: start: 20070101, end: 20070520
  4. CLOBETASONE BUTYRATE [Concomitant]
     Indication: ECZEMA
     Route: 061
     Dates: start: 20070418, end: 20070520
  5. FUSIDATE SODIUM [Concomitant]
     Indication: ECZEMA
     Route: 061
     Dates: start: 20070501, end: 20070520
  6. LEVOCETIRIZINE HYDROCHLORIDE [Concomitant]
     Route: 048
     Dates: start: 20070425
  7. VENTOLIN [Concomitant]
  8. FLUTICASONE PROPIONATE [Concomitant]

REACTIONS (2)
  - INCORRECT DOSE ADMINISTERED [None]
  - TOXIC SKIN ERUPTION [None]
